FAERS Safety Report 12057087 (Version 1)
Quarter: 2016Q1

REPORT INFORMATION
  Report Type: Report from Study
  Country: US (occurrence: US)
  Receive Date: 20160209
  Receipt Date: 20160209
  Transmission Date: 20160526
  Serious: No
  Sender: FDA-Public Use
  Company Number: US-ABBVIE-15P-163-1483638-00

PATIENT
  Age: 14 Year
  Sex: Male

DRUGS (2)
  1. HYDROCODONE [Concomitant]
     Active Substance: HYDROCODONE
     Indication: PRODUCT USED FOR UNKNOWN INDICATION
     Dosage: AS NEEDED
     Route: 048
  2. HUMIRA [Suspect]
     Active Substance: ADALIMUMAB
     Indication: CROHN^S DISEASE
     Route: 065
     Dates: start: 20150715

REACTIONS (8)
  - Proctalgia [Recovering/Resolving]
  - Crohn^s disease [Recovered/Resolved]
  - Haematochezia [Recovered/Resolved]
  - Proctalgia [Recovering/Resolving]
  - Malaise [Recovering/Resolving]
  - Mouth ulceration [Recovering/Resolving]
  - Mouth ulceration [Recovering/Resolving]
  - Crohn^s disease [Recovered/Resolved]

NARRATIVE: CASE EVENT DATE: 20150920
